FAERS Safety Report 26128106 (Version 1)
Quarter: 2025Q4

REPORT INFORMATION
  Report Type: Spontaneous
  Country: US (occurrence: US)
  Receive Date: 20251207
  Receipt Date: 20251207
  Transmission Date: 20260118
  Serious: Yes (Other)
  Sender: ASTELLAS
  Company Number: US-ASTELLAS-2025-AER-066945

PATIENT
  Age: 81 Year
  Sex: Female

DRUGS (4)
  1. TACROLIMUS [Suspect]
     Active Substance: TACROLIMUS
     Indication: Product used for unknown indication
     Dosage: THREE TIMES A WEEK (ON MONDAY, WEDNESDAY, FRIDAY)
     Route: 065
     Dates: start: 2022
  2. TACROLIMUS [Suspect]
     Active Substance: TACROLIMUS
     Dosage: QD, INCREASED TO DAILY
     Route: 065
  3. JAKAFI [Suspect]
     Active Substance: RUXOLITINIB
     Indication: Graft versus host disease
     Dosage: 10 MG BID
     Route: 048
     Dates: start: 202410
  4. FLUOCINONIDE [Concomitant]
     Active Substance: FLUOCINONIDE
     Indication: Product used for unknown indication
     Route: 065

REACTIONS (4)
  - Anaemia [Unknown]
  - Graft versus host disease [Recovering/Resolving]
  - Stress [Unknown]
  - Inappropriate schedule of product administration [Unknown]

NARRATIVE: CASE EVENT DATE: 20220101
